FAERS Safety Report 8909774 (Version 9)
Quarter: 2014Q4

REPORT INFORMATION
  Report Type: Spontaneous
  Country: US (occurrence: US)
  Receive Date: 20121115
  Receipt Date: 20141204
  Transmission Date: 20150529
  Serious: Yes (Hospitalization, Disabling, Other)
  Sender: FDA-Public Use
  Company Number: US-009507513-1211USA005797

PATIENT
  Sex: Female
  Weight: 58.96 kg

DRUGS (5)
  1. FOSAMAX [Suspect]
     Active Substance: ALENDRONATE SODIUM
     Indication: OSTEOPOROSIS
     Dosage: 70 MG, QW
     Route: 048
     Dates: start: 20080602
  2. FOSAMAX [Suspect]
     Active Substance: ALENDRONATE SODIUM
     Indication: OSTEOPENIA
     Dosage: 70 MG, QW
     Route: 048
     Dates: start: 20050811, end: 20080403
  3. ALENDRONATE SODIUM. [Suspect]
     Active Substance: ALENDRONATE SODIUM
     Indication: OSTEOPOROSIS
     Dosage: 70 MG, QW
     Route: 048
     Dates: start: 20080710, end: 20110423
  4. FOSAMAX [Suspect]
     Active Substance: ALENDRONATE SODIUM
     Indication: OSTEOPOROSIS
     Dosage: 35 MG, QW
     Route: 048
     Dates: start: 20020227
  5. HORMONES (UNSPECIFIED) [Concomitant]
     Active Substance: UNSPECIFIED INGREDIENT
     Indication: HORMONE REPLACEMENT THERAPY
     Dosage: UNK
     Route: 048
     Dates: start: 1986

REACTIONS (14)
  - Labyrinthitis [Unknown]
  - Vulvovaginal dryness [Unknown]
  - Biopsy breast [Unknown]
  - Gastritis [Unknown]
  - Hospitalisation [Unknown]
  - Hot flush [Recovering/Resolving]
  - Menopausal symptoms [Unknown]
  - Intramedullary rod insertion [Not Recovered/Not Resolved]
  - Ligament sprain [Recovered/Resolved]
  - Rhinitis allergic [Unknown]
  - Femur fracture [Not Recovered/Not Resolved]
  - Road traffic accident [Recovered/Resolved]
  - Blood cholesterol increased [Unknown]
  - Gastrooesophageal reflux disease [Unknown]

NARRATIVE: CASE EVENT DATE: 2003
